FAERS Safety Report 21026345 (Version 2)
Quarter: 2022Q3

REPORT INFORMATION
  Report Type: Spontaneous
  Country: TW (occurrence: TW)
  Receive Date: 20220630
  Receipt Date: 20220726
  Transmission Date: 20221027
  Serious: Yes (Life-Threatening, Hospitalization, Other)
  Sender: FDA-Public Use
  Company Number: TW-MLMSERVICE-20220616-3619240-1

PATIENT
  Age: 78 Year
  Sex: Male

DRUGS (8)
  1. FLUOROURACIL [Suspect]
     Active Substance: FLUOROURACIL
     Indication: Rectal adenocarcinoma
     Dosage: 400 MG/M^2 ADMINISTERED EVERY 2 WK
     Route: 042
  2. IRINOTECAN [Suspect]
     Active Substance: IRINOTECAN
     Indication: Adenocarcinoma of colon
     Dosage: 120 MG/M^2 ADMINISTERED EVERY 2 WK
     Route: 042
  3. CETUXIMAB [Suspect]
     Active Substance: CETUXIMAB
     Indication: Rectal adenocarcinoma
     Dosage: 500 MG/M^2
  4. LEUCOVORIN [Suspect]
     Active Substance: LEUCOVORIN
     Indication: Adenocarcinoma of colon
     Dosage: 200 MG/M^2 ADMINISTERED EVERY 2 WK
     Route: 042
  5. FLUOROURACIL [Suspect]
     Active Substance: FLUOROURACIL
     Indication: Adenocarcinoma of colon
     Dosage: 400 MG/M^2 ADMINISTERED EVERY 2 WK
     Route: 042
  6. IRINOTECAN [Suspect]
     Active Substance: IRINOTECAN
     Indication: Rectal adenocarcinoma
     Dosage: 120 MG/M^2 ADMINISTERED EVERY 2 WK
     Route: 042
  7. CETUXIMAB [Suspect]
     Active Substance: CETUXIMAB
     Indication: Adenocarcinoma of colon
     Dosage: 500 MG/M^2
  8. LEUCOVORIN [Suspect]
     Active Substance: LEUCOVORIN
     Indication: Rectal adenocarcinoma
     Dosage: 200 MG/M^2 ADMINISTERED EVERY 2 WK
     Route: 042

REACTIONS (3)
  - Intestinal ischaemia [Recovered/Resolved]
  - Pneumatosis intestinalis [Recovered/Resolved]
  - Intestinal ulcer [Recovered/Resolved]
